FAERS Safety Report 4302859-5 (Version None)
Quarter: 2004Q1

REPORT INFORMATION
  Report Type: 
  Country: None (occurrence: None)
  Receive Date: 20040223
  Receipt Date: 20040223
  Transmission Date: 20041129
  Serious: Yes (Hospitalization)
  Sender: FDA-Public Use
  Company Number: None

PATIENT
  Age: 64 Year
  Sex: Female
  Weight: 129.8 kg

DRUGS (1)
  1. ISOVUE-370 [Suspect]
     Indication: CATHETERISATION CARDIAC
     Dosage: 130 ML ONCE INTRAVENOUS
     Route: 042
     Dates: start: 20031215, end: 20031215

REACTIONS (4)
  - CARDIO-RESPIRATORY ARREST [None]
  - CHEST PAIN [None]
  - HAEMODIALYSIS [None]
  - RENAL IMPAIRMENT [None]
